FAERS Safety Report 7480893-4 (Version None)
Quarter: 2011Q2

REPORT INFORMATION
  Report Type: 
  Country: None (occurrence: None)
  Receive Date: 20110506
  Receipt Date: 20090715
  Transmission Date: 20111010
  Serious: Yes (Other)
  Sender: FDA-Public Use
  Company Number: 028242

PATIENT
  Age: 19 Year
  Sex: Male

DRUGS (5)
  1. LACOSAMIDE [Suspect]
     Indication: EPILEPSY
     Dosage: 200 UNIT UNSPECIFIED TWICE DAILY
  2. TOPIRAMATE [Concomitant]
  3. LAMOTRIGINE [Concomitant]
  4. LYRICA [Concomitant]
  5. KEPPRA [Suspect]
     Indication: EPILEPSY
     Dosage: 1500 MG BID

REACTIONS (6)
  - AGGRESSION [None]
  - GAIT DISTURBANCE [None]
  - GRAND MAL CONVULSION [None]
  - SEBACEOUS ADENOMA [None]
  - TUBEROUS SCLEROSIS [None]
  - PARTIAL SEIZURES [None]
